FAERS Safety Report 11459912 (Version 3)
Quarter: 2015Q3

REPORT INFORMATION
  Report Type: Report from Study
  Country: IT (occurrence: IT)
  Receive Date: 20150904
  Receipt Date: 20150918
  Transmission Date: 20151125
  Serious: Yes (Death)
  Sender: FDA-Public Use
  Company Number: PHHO2015IT013768

PATIENT
  Age: 55 Year
  Sex: Female
  Weight: 49 kg

DRUGS (9)
  1. DOCETAXEL. [Suspect]
     Active Substance: DOCETAXEL
     Indication: NON-SMALL CELL LUNG CANCER
     Dosage: 75 MG/M2, UNK
     Route: 042
     Dates: start: 20150402, end: 20150402
  2. SOLDESAM [Concomitant]
     Active Substance: DEXAMETHASONE
     Indication: PROPHYLAXIS
     Dosage: 20 DRP, QD
     Route: 065
     Dates: start: 20150811
  3. LANSOPRAZOL [Concomitant]
     Active Substance: LANSOPRAZOLE
     Indication: GASTRITIS PROPHYLAXIS
     Dosage: 20 MG, QD
     Route: 065
     Dates: start: 20150811
  4. LDK378 [Suspect]
     Active Substance: CERITINIB
     Indication: NON-SMALL CELL LUNG CANCER
     Dosage: 750 MG, UNK
     Route: 048
     Dates: start: 20150519, end: 20150811
  5. OMEPRAZOL//OMEPRAZOLE [Concomitant]
     Indication: GASTRITIS PROPHYLAXIS
     Dosage: 20 MG, QD
     Route: 048
     Dates: start: 20150423
  6. LAEVOLAC [Concomitant]
     Active Substance: LACTULOSE
     Indication: CONSTIPATION PROPHYLAXIS
     Dosage: UNK PRN
     Route: 065
     Dates: start: 20150811
  7. LASIX [Concomitant]
     Active Substance: FUROSEMIDE
     Indication: PROPHYLAXIS
     Dosage: 2 DF (CAPSULE), PRN
     Route: 048
     Dates: start: 20150423
  8. PARACODEINE [Concomitant]
     Indication: COUGH
     Dosage: 20 DROP, PRN
     Route: 065
     Dates: start: 20150423
  9. TIOBEC (THIOCTIC ACID) [Concomitant]
     Indication: ASTHENIA
     Dosage: 800 UG, QD
     Route: 065
     Dates: start: 20150625

REACTIONS (1)
  - Sudden death [Fatal]
